FAERS Safety Report 12490239 (Version 1)
Quarter: 2016Q2

REPORT INFORMATION
  Report Type: Spontaneous
  Country: DE (occurrence: DE)
  Receive Date: 20160622
  Receipt Date: 20160622
  Transmission Date: 20160815
  Serious: Yes (Death, Hospitalization, Other)
  Sender: FDA-Public Use
  Company Number: DE-PFIZER INC-2016304600

PATIENT
  Age: 73 Year
  Sex: Female
  Weight: 85 kg

DRUGS (1)
  1. METHOTREXATE (METHOTREXATE SODIUM) [Suspect]
     Active Substance: METHOTREXATE SODIUM
     Indication: RHEUMATOID ARTHRITIS
     Dosage: 2X 15 MG, AS NEEDED
     Route: 048

REACTIONS (5)
  - Pancytopenia [Fatal]
  - Bone marrow failure [Fatal]
  - Asphyxia [Unknown]
  - Cerebral ischaemia [Fatal]
  - Epistaxis [Unknown]

NARRATIVE: CASE EVENT DATE: 20160612
